FAERS Safety Report 4575756-8 (Version None)
Quarter: 2005Q1

REPORT INFORMATION
  Report Type: 
  Country: None (occurrence: None)
  Receive Date: 20050128
  Receipt Date: 20050128
  Transmission Date: 20050727
  Serious: Yes (Hospitalization)
  Sender: FDA-Public Use
  Company Number: None

PATIENT
  Sex: Male
  Weight: 99.8 kg

DRUGS (20)
  1. BEXTRA [Suspect]
     Indication: OSTEOARTHRITIS
     Dosage: 20MG   DAILY   ORAL
     Route: 048
  2. ALBUTEROL [Concomitant]
  3. AMBIEN [Concomitant]
  4. COMBIVENT [Concomitant]
  5. COUMADIN [Concomitant]
  6. FLONASE [Concomitant]
  7. GFN / DM [Concomitant]
  8. LASIX [Concomitant]
  9. MULTI-VITAMIN [Concomitant]
  10. OXYCODONE AND ACETAMINOPHEN [Concomitant]
  11. POTASSIUM CHLORIDE [Concomitant]
  12. PRAVACHOL [Concomitant]
  13. PREVACID [Concomitant]
  14. PROSCAR [Concomitant]
  15. PULMICORT [Concomitant]
  16. SEREVENT [Concomitant]
  17. TOPROL-XL [Concomitant]
  18. TRIAMTERENE AND HYDROCHLOROTHIAZIDE [Concomitant]
  19. TRICOR [Concomitant]
  20. ZAROXOLYN [Concomitant]

REACTIONS (3)
  - CARDIAC FAILURE CONGESTIVE [None]
  - HYPERTENSION [None]
  - RENAL FAILURE [None]
